FAERS Safety Report 18385115 (Version 1)
Quarter: 2020Q4

REPORT INFORMATION
  Report Type: Report from Study
  Country: US (occurrence: US)
  Receive Date: 20201014
  Receipt Date: 20201014
  Transmission Date: 20210114
  Serious: Yes (Death, Life-Threatening, Hospitalization)
  Sender: FDA-Public Use
  Company Number: US-ROCHE-2692078

PATIENT
  Age: 25 Year
  Sex: Female
  Weight: 91.1 kg

DRUGS (10)
  1. FERROUS SULFATE. [Concomitant]
     Active Substance: FERROUS SULFATE
     Dosage: QAM
     Dates: start: 20200819
  2. CLONAZEPAM. [Concomitant]
     Active Substance: CLONAZEPAM
     Dosage: QPM
     Route: 048
     Dates: start: 20200817
  3. REMERON [Concomitant]
     Active Substance: MIRTAZAPINE
     Dosage: QPM
     Route: 048
     Dates: start: 20200813
  4. HYDROMORPHONE [Concomitant]
     Active Substance: HYDROMORPHONE
     Dosage: Q4H PRN
     Route: 048
     Dates: start: 20200828, end: 20200831
  5. FENTANYL. [Concomitant]
     Active Substance: FENTANYL
     Route: 062
     Dates: start: 20200828, end: 20200831
  6. BEVACIZUMAB. [Suspect]
     Active Substance: BEVACIZUMAB
     Indication: ENDOMETRIAL CANCER
     Route: 042
     Dates: start: 20200724, end: 20200812
  7. DEXAMETHASONE. [Concomitant]
     Active Substance: DEXAMETHASONE
     Route: 048
     Dates: start: 20200817, end: 20200831
  8. CHOLECALCIFEROLUM [Concomitant]
     Active Substance: CHOLECALCIFEROL
     Route: 048
     Dates: start: 20200819
  9. ATEZOLIZUMAB. [Suspect]
     Active Substance: ATEZOLIZUMAB
     Indication: ENDOMETRIAL CANCER
     Route: 042
     Dates: start: 20200724, end: 20200812
  10. OXYCODONE [Concomitant]
     Active Substance: OXYCODONE
     Dosage: Q2H PRN
     Route: 048
     Dates: start: 20200819, end: 20200831

REACTIONS (7)
  - Respiratory failure [Unknown]
  - Pneumonia [Unknown]
  - Acute respiratory failure [Unknown]
  - Dyspnoea [Unknown]
  - Metastatic neoplasm [Unknown]
  - Metastatic neoplasm [Unknown]
  - Death [Fatal]

NARRATIVE: CASE EVENT DATE: 20200831
